FAERS Safety Report 7224186-9 (Version None)
Quarter: 2011Q1

REPORT INFORMATION
  Report Type: 
  Country: None (occurrence: None)
  Receive Date: 20110106
  Receipt Date: 20110106
  Transmission Date: 20110831
  Serious: No
  Sender: FDA-Public Use
  Company Number: None

PATIENT
  Age: 54 Year
  Sex: Female
  Weight: 108.8633 kg

DRUGS (2)
  1. VENLAFAXINE [Suspect]
     Indication: MAJOR DEPRESSION
     Dosage: 75MG 3 CAPSULES DAILY PO
     Route: 048
     Dates: start: 20101001, end: 20101231
  2. VENLAFAXINE [Suspect]
     Indication: PANIC DISORDER
     Dosage: 75MG 3 CAPSULES DAILY PO
     Route: 048
     Dates: start: 20101001, end: 20101231

REACTIONS (4)
  - IMPAIRED WORK ABILITY [None]
  - HEADACHE [None]
  - ACTIVITIES OF DAILY LIVING IMPAIRED [None]
  - PRODUCT SUBSTITUTION ISSUE [None]
